FAERS Safety Report 7114106-X (Version None)
Quarter: 2010Q4

REPORT INFORMATION
  Report Type: 
  Country: None (occurrence: None)
  Receive Date: 20101119
  Receipt Date: 20101117
  Transmission Date: 20110411
  Serious: Yes (Other)
  Sender: FDA-Public Use
  Company Number: US-PFIZER INC-2010132751

PATIENT
  Sex: Female
  Weight: 68.027 kg

DRUGS (10)
  1. ZOLOFT [Suspect]
     Indication: MIGRAINE
     Dosage: 50 MG, 1X/DAY
     Route: 048
     Dates: start: 19990101
  2. ZOLOFT [Suspect]
     Dosage: 100 MG, 2X/DAY
     Route: 048
  3. ZOLOFT [Suspect]
     Dosage: 100 MG, 1X/DAY
     Route: 048
  4. LIPITOR [Concomitant]
     Dosage: 40 MG, UNK
  5. LISINOPRIL [Concomitant]
     Dosage: 20 MG, UNK
  6. PLAVIX [Concomitant]
     Dosage: 75 MG, UNK
  7. PROPRANOLOL [Concomitant]
     Dosage: 60 MG, UNK
  8. VESICARE [Concomitant]
     Dosage: UNK
  9. ACETYLSALICYLIC ACID [Concomitant]
     Dosage: 80 MG, UNK
  10. ESTRADIOL [Concomitant]
     Dosage: 1 MG, UNK

REACTIONS (5)
  - DEPRESSION [None]
  - HEADACHE [None]
  - MEMORY IMPAIRMENT [None]
  - MYOCARDIAL INFARCTION [None]
  - NECK PAIN [None]
